FAERS Safety Report 12993998 (Version 1)
Quarter: 2016Q4

REPORT INFORMATION
  Report Type: Spontaneous
  Country: US (occurrence: US)
  Receive Date: 20161201
  Receipt Date: 20161201
  Transmission Date: 20170207
  Serious: Yes (Death)
  Sender: FDA-Public Use
  Company Number: None

PATIENT
  Age: 79 Year
  Sex: Female

DRUGS (11)
  1. NORVASC [Concomitant]
     Active Substance: AMLODIPINE BESYLATE
  2. BRILINTA [Concomitant]
     Active Substance: TICAGRELOR
  3. FERROUS SULAFTE [Concomitant]
  4. METOPROLOL TARTRATE. [Concomitant]
     Active Substance: METOPROLOL TARTRATE
  5. PREDNISONE. [Concomitant]
     Active Substance: PREDNISONE
  6. PLAVIX [Concomitant]
     Active Substance: CLOPIDOGREL BISULFATE
  7. PRALUENT [Suspect]
     Active Substance: ALIROCUMAB
     Indication: HYPERCHOLESTEROLAEMIA
     Dosage: ?          OTHER FREQUENCY:EVERY 2 WEEKS;?
     Route: 058
     Dates: start: 20161108
  8. XANAX [Concomitant]
     Active Substance: ALPRAZOLAM
  9. NITROSTAT [Concomitant]
     Active Substance: NITROGLYCERIN
  10. ASPIRIN EC [Concomitant]
     Active Substance: ASPIRIN
  11. TRENTAL [Concomitant]
     Active Substance: PENTOXIFYLLINE

REACTIONS (1)
  - Death [None]
